FAERS Safety Report 9616220 (Version 1)
Quarter: 2013Q4

REPORT INFORMATION
  Report Type: Spontaneous
  Country: US (occurrence: US)
  Receive Date: 20131011
  Receipt Date: 20131011
  Transmission Date: 20140711
  Serious: No
  Sender: FDA-Public Use
  Company Number: US-PURDUE-USA-2013-0099998

PATIENT
  Sex: Female

DRUGS (2)
  1. BUTRANS [Suspect]
     Indication: BACK PAIN
     Dosage: 10 MCG/HR, WEEKLY
     Route: 062
     Dates: start: 201208
  2. BUTRANS [Suspect]
     Dosage: 5 MCG/HR, WEEKLY
     Route: 062
     Dates: end: 201208

REACTIONS (6)
  - Application site discolouration [Unknown]
  - Application site pruritus [Not Recovered/Not Resolved]
  - Application site pain [Not Recovered/Not Resolved]
  - Application site irritation [Unknown]
  - Application site exfoliation [Unknown]
  - Application site reaction [Unknown]
